FAERS Safety Report 10587477 (Version 2)
Quarter: 2014Q4

REPORT INFORMATION
  Report Type: Spontaneous
  Country: US (occurrence: US)
  Receive Date: 20141117
  Receipt Date: 20141224
  Transmission Date: 20150529
  Serious: No
  Sender: FDA-Public Use
  Company Number: US-PFIZER INC-2014312872

PATIENT
  Age: 65 Year
  Sex: Female
  Weight: 65.76 kg

DRUGS (7)
  1. LANTUS [Concomitant]
     Active Substance: INSULIN GLARGINE
     Indication: DIABETES MELLITUS
     Dosage: 9 MG, AT NIGHT
  2. HUMALOG [Concomitant]
     Active Substance: INSULIN LISPRO
     Indication: DIABETES MELLITUS
     Dosage: 6 UNITS IN MORNING, 2-3 UNITS IN AFTERNOON AND 6 UNITS IN EVENING, 3X/DAY
  3. TRAMADOL [Suspect]
     Active Substance: TRAMADOL
     Indication: PAIN
     Dosage: 50 MG, 4X/DAY
     Dates: start: 20141105, end: 20141217
  4. HYDROCODONE [Concomitant]
     Active Substance: HYDROCODONE
     Indication: PAIN
     Dosage: 1X/DAY WHEN SHE WAS TAKING LYRICA
  5. GABAPENTIN. [Suspect]
     Active Substance: GABAPENTIN
     Indication: PAIN
  6. GABAPENTIN. [Suspect]
     Active Substance: GABAPENTIN
     Indication: DIABETIC NEUROPATHY
     Dosage: 100 MG, 3X/DAY
     Dates: start: 20141105, end: 201412
  7. HYDROCODONE [Concomitant]
     Active Substance: HYDROCODONE
     Dosage: 50 MG, 4X/DAY

REACTIONS (2)
  - Drug ineffective [Unknown]
  - Vision blurred [Recovering/Resolving]
